FAERS Safety Report 12577922 (Version 2)
Quarter: 2016Q3

REPORT INFORMATION
  Report Type: Report from Study
  Country: US (occurrence: US)
  Receive Date: 20160721
  Receipt Date: 20160721
  Transmission Date: 20161109
  Serious: Yes (Hospitalization, Other)
  Sender: FDA-Public Use
  Company Number: US-ROCHE-1008261

PATIENT
  Age: 26 Year
  Sex: Male
  Weight: 63 kg

DRUGS (3)
  1. RO 4929097 (GAMMA SECRETASE INHIBITOR) [Suspect]
     Active Substance: INVESTIGATIONAL PRODUCT
     Indication: SARCOMA METASTATIC
     Route: 048
     Dates: start: 20110825
  2. RO 4929097 (GAMMA SECRETASE INHIBITOR) [Suspect]
     Active Substance: INVESTIGATIONAL PRODUCT
     Route: 048
     Dates: start: 20110917, end: 20111005
  3. VISMODEGIB [Suspect]
     Active Substance: VISMODEGIB
     Indication: SARCOMA METASTATIC
     Route: 048
     Dates: start: 20110825, end: 20111005

REACTIONS (4)
  - Hypophosphataemia [Unknown]
  - Tumour pain [Unknown]
  - Lymphocyte count decreased [Unknown]
  - Anaemia [Unknown]

NARRATIVE: CASE EVENT DATE: 20110909
